FAERS Safety Report 5283645-9 (Version None)
Quarter: 2007Q1

REPORT INFORMATION
  Report Type: 
  Country: None (occurrence: None)
  Receive Date: 20061226
  Receipt Date: 20061025
  Transmission Date: 20070707
  Serious: Yes (Other)
  Sender: FDA-Public Use
  Company Number: 2006S1000263

PATIENT
  Age: 64 Year
  Sex: Male

DRUGS (4)
  1. SORIATANE [Suspect]
     Indication: PSORIASIS
     Dosage: 25 MG;BID;PO
     Route: 048
     Dates: start: 20061016, end: 20061020
  2. DOXEPIN HCL [Concomitant]
  3. DOVONEX [Concomitant]
  4. TRIAMCINOLONE [Concomitant]

REACTIONS (1)
  - PHOTOSENSITIVITY REACTION [None]
